FAERS Safety Report 7889682-X (Version None)
Quarter: 2011Q4

REPORT INFORMATION
  Report Type: 
  Country: None (occurrence: None)
  Receive Date: 20111103
  Receipt Date: 20111025
  Transmission Date: 20120403
  Serious: Yes (Hospitalization)
  Sender: FDA-Public Use
  Company Number: BE-GLAXOSMITHKLINE-B0754438A

PATIENT
  Sex: Female
  Weight: 80 kg

DRUGS (2)
  1. ALLI [Suspect]
     Indication: OVERWEIGHT
     Dosage: 60MG THREE TIMES PER DAY
     Route: 065
     Dates: start: 20110914, end: 20110916
  2. ORGAMETRIL [Concomitant]
     Indication: HORMONE THERAPY

REACTIONS (6)
  - GAIT DISTURBANCE [None]
  - FLUID RETENTION [None]
  - JOINT SWELLING [None]
  - BLISTER [None]
  - RASH [None]
  - PRURITUS [None]
